FAERS Safety Report 25635357 (Version 2)
Quarter: 2025Q3

REPORT INFORMATION
  Report Type: Spontaneous
  Country: JP (occurrence: JP)
  Receive Date: 20250802
  Receipt Date: 20250902
  Transmission Date: 20251020
  Serious: Yes (Hospitalization)
  Sender: AMGEN
  Company Number: JP-AMGEN-JPNSP2025149467

PATIENT
  Age: 6 Decade
  Sex: Female

DRUGS (5)
  1. BLINCYTO [Suspect]
     Active Substance: BLINATUMOMAB
     Indication: Acute lymphocytic leukaemia
     Dosage: 9 MICROGRAM, QD, PERIPHERALLY INSERTED CENTRAL CATHETER (PICC)
     Route: 040
     Dates: start: 20250724, end: 20250725
  2. BLINCYTO [Suspect]
     Active Substance: BLINATUMOMAB
     Dosage: 9 MICROGRAM, QD, PERIPHERALLY INSERTED CENTRAL CATHETER (PICC) (RESUMED)
     Route: 040
     Dates: start: 20250728, end: 20250731
  3. BLINCYTO [Suspect]
     Active Substance: BLINATUMOMAB
     Dosage: 28 MICROGRAM, QD, PERIPHERALLY INSERTED CENTRAL CATHETER (PICC), DOSE INCREASED
     Route: 040
     Dates: start: 20250731
  4. DEXAMETHASONE [Concomitant]
     Active Substance: DEXAMETHASONE
     Indication: Prophylaxis
     Dates: start: 20250724, end: 20250724
  5. ISOTONIC SODIUM CHLORIDE SOLUTION [Concomitant]
     Active Substance: SODIUM CHLORIDE
     Dosage: 1000 MILLILITER, QD

REACTIONS (4)
  - Malaise [Recovering/Resolving]
  - Fatigue [Unknown]
  - Chills [Unknown]
  - Pyrexia [Recovered/Resolved]

NARRATIVE: CASE EVENT DATE: 20250725
